FAERS Safety Report 24909499 (Version 1)
Quarter: 2025Q1

REPORT INFORMATION
  Report Type: Spontaneous
  Country: AT (occurrence: AT)
  Receive Date: 20250131
  Receipt Date: 20250131
  Transmission Date: 20250409
  Serious: Yes (Other)
  Sender: MYLAN
  Company Number: AT-MYLANLABS-2025M1008503

PATIENT
  Age: 25 Year
  Sex: Female

DRUGS (4)
  1. CISPLATIN [Suspect]
     Active Substance: CISPLATIN
     Indication: Adenocarcinoma
     Route: 065
     Dates: start: 202212, end: 202301
  2. GEMCITABINE [Suspect]
     Active Substance: GEMCITABINE
     Indication: Adenocarcinoma
     Route: 065
     Dates: start: 202212, end: 202301
  3. DURVALUMAB [Suspect]
     Active Substance: DURVALUMAB
     Indication: Adenocarcinoma
     Route: 065
     Dates: start: 202212, end: 202301
  4. DENOSUMAB [Suspect]
     Active Substance: DENOSUMAB
     Indication: Adenocarcinoma
     Route: 065

REACTIONS (2)
  - Drug ineffective [Unknown]
  - Disease progression [Unknown]
